FAERS Safety Report 22817408 (Version 2)
Quarter: 2025Q2

REPORT INFORMATION
  Report Type: Spontaneous
  Country: US (occurrence: US)
  Receive Date: 20230812
  Receipt Date: 20250503
  Transmission Date: 20250716
  Serious: Yes (Other)
  Sender: AUROBINDO
  Company Number: US-MLMSERVICE-20230726-4432036-1

PATIENT
  Age: 67 Year
  Sex: Female

DRUGS (7)
  1. PREDNISONE [Suspect]
     Active Substance: PREDNISONE
     Indication: Condition aggravated
     Dosage: 30 MILLIGRAM, ONCE A DAY
     Route: 048
  2. PREDNISONE [Suspect]
     Active Substance: PREDNISONE
     Indication: Scleritis
     Route: 048
  3. PREDNISOLONE [Suspect]
     Active Substance: PREDNISOLONE
     Indication: Condition aggravated
     Dosage: UNK UNK, 3 TIMES A DAY
     Route: 065
  4. PREDNISOLONE [Suspect]
     Active Substance: PREDNISOLONE
     Indication: Scleritis
  5. ETANERCEPT [Concomitant]
     Active Substance: ETANERCEPT
     Indication: Rheumatoid arthritis
     Dosage: 50 MILLIGRAM, EVERY WEEK
     Route: 058
  6. TRIAMCINOLONE ACETONIDE [Concomitant]
     Active Substance: TRIAMCINOLONE ACETONIDE
     Indication: Immunomodulatory therapy
     Route: 057
  7. RITUXIMAB [Concomitant]
     Active Substance: RITUXIMAB
     Indication: Immunomodulatory therapy
     Route: 065

REACTIONS (2)
  - Ocular hypertension [Recovering/Resolving]
  - Glaucoma [Recovering/Resolving]
